FAERS Safety Report 7834236-4 (Version None)
Quarter: 2011Q4

REPORT INFORMATION
  Report Type: 
  Country: None (occurrence: None)
  Receive Date: 20111024
  Receipt Date: 20111019
  Transmission Date: 20120403
  Serious: Yes (Death)
  Sender: FDA-Public Use
  Company Number: PHHY2011CA91298

PATIENT
  Sex: Female

DRUGS (1)
  1. EXJADE [Suspect]
     Indication: IRON OVERLOAD
     Dosage: 625 MG, QD
     Dates: start: 20080728, end: 20110812

REACTIONS (2)
  - INTERSTITIAL LUNG DISEASE [None]
  - COMPLICATIONS OF BONE MARROW TRANSPLANT [None]
